FAERS Safety Report 13152432 (Version 4)
Quarter: 2017Q2

REPORT INFORMATION
  Report Type: Report from Study
  Country: US (occurrence: US)
  Receive Date: 20170125
  Receipt Date: 20170411
  Transmission Date: 20170830
  Serious: Yes (Hospitalization)
  Sender: FDA-Public Use
  Company Number: US-EXELIXIS-CABO-16007846

PATIENT
  Age: 72 Year
  Sex: Male
  Weight: 84.63 kg

DRUGS (13)
  1. GEMFIBROZIL. [Concomitant]
     Active Substance: GEMFIBROZIL
  2. LEVOTHYROXINE. [Concomitant]
     Active Substance: LEVOTHYROXINE
  3. TRAZODONE [Concomitant]
     Active Substance: TRAZODONE HYDROCHLORIDE
  4. GABAPENTIN. [Concomitant]
     Active Substance: GABAPENTIN
  5. PROPANOLOL [Concomitant]
     Active Substance: PROPRANOLOL HYDROCHLORIDE
  6. PLAVIX [Concomitant]
     Active Substance: CLOPIDOGREL BISULFATE
  7. PRIMIDONE. [Concomitant]
     Active Substance: PRIMIDONE
  8. ATORVASTATIN [Concomitant]
     Active Substance: ATORVASTATIN
  9. CABOMETYX [Suspect]
     Active Substance: CABOZANTINIB S-MALATE
     Indication: RENAL CANCER
     Dosage: 60 MG, QD
     Route: 048
     Dates: start: 20161210, end: 20161228
  10. ASPIRIN. [Concomitant]
     Active Substance: ASPIRIN
  11. DULOXETINE. [Concomitant]
     Active Substance: DULOXETINE
  12. AMLODIPINE [Concomitant]
     Active Substance: AMLODIPINE BESYLATE
  13. LOSARTAN. [Concomitant]
     Active Substance: LOSARTAN

REACTIONS (28)
  - Acute kidney injury [Recovered/Resolved]
  - N-terminal prohormone brain natriuretic peptide increased [Recovered/Resolved]
  - Dizziness [Unknown]
  - Diarrhoea [Not Recovered/Not Resolved]
  - Decreased appetite [Not Recovered/Not Resolved]
  - Dysgeusia [Not Recovered/Not Resolved]
  - Cough [Recovering/Resolving]
  - Hyperbilirubinaemia [Recovered/Resolved]
  - Pleural effusion [Unknown]
  - Chromaturia [Not Recovered/Not Resolved]
  - Arthralgia [Unknown]
  - Haemoptysis [Unknown]
  - Liver function test increased [Recovered/Resolved]
  - Chest discomfort [Unknown]
  - Asthenia [Unknown]
  - Memory impairment [Unknown]
  - Dyspnoea exertional [Not Recovered/Not Resolved]
  - Hypokalaemia [Recovered/Resolved]
  - Faeces discoloured [Not Recovered/Not Resolved]
  - Nausea [Recovered/Resolved]
  - Hyponatraemia [Recovered/Resolved]
  - Blood creatine phosphokinase increased [Recovered/Resolved]
  - Somnolence [Unknown]
  - Drug ineffective [Unknown]
  - Fall [Unknown]
  - Back pain [Not Recovered/Not Resolved]
  - Pruritus generalised [Not Recovered/Not Resolved]
  - Fatigue [Not Recovered/Not Resolved]

NARRATIVE: CASE EVENT DATE: 201612
